APPROVED DRUG PRODUCT: INDOMETHACIN
Active Ingredient: INDOMETHACIN
Strength: 75MG
Dosage Form/Route: CAPSULE, EXTENDED RELEASE;ORAL
Application: A072410 | Product #001
Applicant: INWOOD LABORATORIES INC SUB FOREST LABORATORIES INC
Approved: Mar 15, 1989 | RLD: No | RS: No | Type: DISCN